FAERS Safety Report 14442113 (Version 1)
Quarter: 2018Q1

REPORT INFORMATION
  Report Type: Spontaneous
  Country: US (occurrence: US)
  Receive Date: 20180125
  Receipt Date: 20180125
  Transmission Date: 20180509
  Serious: Yes (Hospitalization)
  Sender: FDA-Public Use
  Company Number: US-TEVA-2018-US-850258

PATIENT
  Age: 35 Year
  Sex: Male

DRUGS (2)
  1. OXYCODONE HYDROCHLORIDE. [Suspect]
     Active Substance: OXYCODONE HYDROCHLORIDE
     Indication: ABDOMINAL PAIN
     Route: 065
  2. TRAMADOL. [Suspect]
     Active Substance: TRAMADOL
     Indication: ABDOMINAL PAIN
     Route: 065

REACTIONS (3)
  - Constipation [Unknown]
  - Irritable bowel syndrome [Unknown]
  - Narcotic bowel syndrome [Unknown]

NARRATIVE: CASE EVENT DATE: 2017
